FAERS Safety Report 8604841-6 (Version None)
Quarter: 2012Q3

REPORT INFORMATION
  Report Type: 
  Country: None (occurrence: None)
  Receive Date: 20120820
  Receipt Date: 20120808
  Transmission Date: 20120928
  Serious: No
  Sender: FDA-Public Use
  Company Number: US-B.I. PHARMACEUTICALS,INC./RIDGEFIELD-2012-BP-17886BP

PATIENT
  Sex: Male

DRUGS (10)
  1. TRADJENTA [Suspect]
     Indication: TYPE 2 DIABETES MELLITUS
     Dosage: 5 MG
     Route: 048
     Dates: start: 20120706
  2. ATENOLOL [Concomitant]
  3. COSOPT [Concomitant]
  4. GABAPENTIN [Concomitant]
  5. DIOVAN [Concomitant]
  6. GLIPIZIDE [Concomitant]
  7. SYNTHROID [Concomitant]
  8. DYAZIDE [Concomitant]
  9. POTASSIUM CHLORIDE [Concomitant]
  10. WARFARIN SODIUM [Concomitant]

REACTIONS (2)
  - AGEUSIA [None]
  - DYSGEUSIA [None]
